FAERS Safety Report 12188407 (Version 2)
Quarter: 2016Q2

REPORT INFORMATION
  Report Type: Report from Study
  Country: BR (occurrence: BR)
  Receive Date: 20160317
  Receipt Date: 20160420
  Transmission Date: 20160815
  Serious: Yes (Other)
  Sender: FDA-Public Use
  Company Number: BR-JNJFOC-20160312178

PATIENT
  Age: 50 Year
  Sex: Female

DRUGS (1)
  1. SIMPONI [Suspect]
     Active Substance: GOLIMUMAB
     Indication: RHEUMATOID ARTHRITIS
     Route: 058
     Dates: start: 20160210

REACTIONS (6)
  - Epistaxis [Unknown]
  - Abdominal pain upper [Unknown]
  - Sinusitis [Unknown]
  - Secretion discharge [Unknown]
  - Inflammation [Unknown]
  - Influenza [Unknown]

NARRATIVE: CASE EVENT DATE: 2016
